FAERS Safety Report 4838944-9 (Version None)
Quarter: 2005Q4

REPORT INFORMATION
  Report Type: 
  Country: None (occurrence: None)
  Receive Date: 20051024
  Receipt Date: 20050909
  Transmission Date: 20060501
  Serious: Yes (Life-Threatening)
  Sender: FDA-Public Use
  Company Number: 217529

PATIENT
  Age: 53 Year
  Sex: Female
  Weight: 90.2 kg

DRUGS (5)
  1. XOLAIR [Suspect]
     Indication: ASTHMA
     Dosage: 300 MG,Q2W, SUBCUTANEOUS
     Route: 058
     Dates: start: 20050114, end: 20050708
  2. PULMICORT [Concomitant]
  3. FORADIL [Concomitant]
  4. ALBUTEROL (ALBUTEROL, ALBUTEROL SULFATE) [Concomitant]
  5. FLONASE [Concomitant]

REACTIONS (1)
  - LUNG NEOPLASM MALIGNANT [None]
